FAERS Safety Report 8015487-5 (Version None)
Quarter: 2011Q4

REPORT INFORMATION
  Report Type: 
  Country: None (occurrence: None)
  Receive Date: 20111230
  Receipt Date: 20111228
  Transmission Date: 20120403
  Serious: No
  Sender: FDA-Public Use
  Company Number: US-BAYER-2011-124322

PATIENT

DRUGS (2)
  1. LYRICA [Concomitant]
     Dosage: 100 MG, TID
  2. ALEVE (CAPLET) [Suspect]
     Dosage: UNK UNK, TID
     Route: 048

REACTIONS (2)
  - DRUG INEFFECTIVE [None]
  - DEPRESSION [None]
